FAERS Safety Report 9223855 (Version 6)
Quarter: 2014Q2

REPORT INFORMATION
  Report Type: Spontaneous
  Country: US (occurrence: US)
  Receive Date: 20130411
  Receipt Date: 20140425
  Transmission Date: 20141212
  Serious: Yes (Other)
  Sender: FDA-Public Use
  Company Number: US-AMGEN-USASP2013023911

PATIENT
  Age: 70 Year
  Sex: Female
  Weight: 68.03 kg

DRUGS (26)
  1. ENBREL [Suspect]
     Indication: PSORIATIC ARTHROPATHY
     Dosage: 50 MG, QWK
     Route: 058
     Dates: start: 20031229
  2. ENBREL [Suspect]
     Indication: PSORIASIS
     Dosage: UNK
     Route: 065
  3. SORIATANE [Concomitant]
     Dosage: UNK
  4. HALOBETASOL PROP [Concomitant]
     Dosage: UNK
  5. CLOBETASOL [Concomitant]
     Dosage: UNK
  6. CLOBEX                             /00012002/ [Concomitant]
     Dosage: UNK
  7. HUMIRA [Concomitant]
     Indication: PSORIASIS
     Dosage: 40 UNK, QWK
     Route: 048
     Dates: start: 20080918, end: 20090311
  8. MUPIROCIN [Concomitant]
     Dosage: UNK
  9. KENALOG                            /00031902/ [Concomitant]
     Dosage: UNK
  10. TACLONEX [Concomitant]
     Dosage: UNK UNK, BIWEEKLY
     Dates: start: 2006
  11. LISINOPRIL [Concomitant]
     Dosage: UNK
  12. HCTZ [Concomitant]
     Dosage: UNK
  13. EFFEXOR [Concomitant]
     Dosage: UNK
  14. NEXIUM                             /01479303/ [Concomitant]
     Dosage: UNK
  15. SIMVASTATIN [Concomitant]
     Dosage: UNK
  16. PAROXETINE [Concomitant]
     Dosage: UNK
  17. CELEBREX [Concomitant]
     Dosage: UNK
  18. PLAVIX [Concomitant]
     Dosage: UNK
  19. CYMBALTA [Concomitant]
     Dosage: UNK
  20. NAMENDA [Concomitant]
     Dosage: UNK
  21. VIT D3 [Concomitant]
     Dosage: UNK
  22. TOPROL [Concomitant]
     Dosage: UNK
  23. ASPIRIN [Concomitant]
     Dosage: UNK
  24. ARICEPT [Concomitant]
     Dosage: UNK
  25. DICYCLOMINE HCL [Concomitant]
     Dosage: UNK
  26. POTASSIUM CHLORIDE [Concomitant]
     Dosage: UNK

REACTIONS (5)
  - Dementia [Not Recovered/Not Resolved]
  - Hyperhidrosis [Not Recovered/Not Resolved]
  - Nausea [Not Recovered/Not Resolved]
  - Fatigue [Unknown]
  - Pain [Unknown]
